FAERS Safety Report 7511402-9 (Version None)
Quarter: 2011Q2

REPORT INFORMATION
  Report Type: 
  Country: None (occurrence: None)
  Receive Date: 20110531
  Receipt Date: 20100625
  Transmission Date: 20111010
  Serious: Yes (Hospitalization, Other)
  Sender: FDA-Public Use
  Company Number: US-BAYER-201013264NA

PATIENT
  Age: 33 Year
  Sex: Female
  Weight: 100 kg

DRUGS (20)
  1. YASMIN [Suspect]
     Indication: SLEEP DISORDER
     Dosage: UNK
     Route: 048
     Dates: start: 20030801, end: 20031201
  2. YASMIN [Suspect]
     Dosage: UNK
     Route: 048
     Dates: start: 20050401, end: 20051101
  3. THYROID PREPARATIONS [Concomitant]
  4. NEXIUM [Concomitant]
     Indication: GASTROOESOPHAGEAL REFLUX DISEASE
     Dosage: 40 MG (DAILY DOSE), ,
  5. PERCOCET [Concomitant]
     Dosage: 5 MG (DAILY DOSE), Q4HR, ORAL
     Route: 048
  6. OXYCET [Concomitant]
     Dosage: 5 MG (DAILY DOSE), Q4HR, ORAL
     Route: 048
  7. YASMIN [Suspect]
     Dosage: UNK
     Route: 048
     Dates: start: 20040801, end: 20041101
  8. YASMIN [Suspect]
     Dosage: UNK
     Dates: start: 20060201, end: 20060430
  9. YASMIN [Suspect]
     Dosage: UNK
     Dates: start: 20090104
  10. YAZ [Suspect]
     Dosage: UNK
     Route: 048
     Dates: start: 20090714, end: 20090801
  11. K-LYTE [Concomitant]
     Route: 048
  12. CLONAZEPAM [Concomitant]
     Indication: SLEEP DISORDER
  13. YASMIN [Suspect]
     Dosage: UNK
     Dates: start: 20080501, end: 20081201
  14. YASMIN [Suspect]
     Dosage: UNK
     Dates: start: 20090201, end: 20090401
  15. YAZ [Suspect]
     Indication: PRODUCT USED FOR UNKNOWN INDICATION
     Dosage: UNK
     Route: 048
     Dates: start: 20030501, end: 20060401
  16. CYMBALTA [Concomitant]
     Indication: FIBROMYALGIA
     Dosage: 30 MG (DAILY DOSE), ,
     Dates: start: 20090101
  17. YASMIN [Suspect]
     Dosage: UNK
     Route: 048
     Dates: start: 20040101, end: 20040501
  18. NSAID'S [Concomitant]
     Dosage: UNK
     Dates: start: 20000101
  19. YAZ [Suspect]
     Dosage: UNK
     Route: 048
     Dates: start: 20080201, end: 20090415
  20. DILAUDID [Concomitant]
     Indication: ABDOMINAL PAIN UPPER
     Dates: start: 20081229

REACTIONS (7)
  - ABDOMINAL PAIN [None]
  - NAUSEA [None]
  - OEDEMA PERIPHERAL [None]
  - CHOLECYSTITIS CHRONIC [None]
  - CHOLELITHIASIS [None]
  - VOMITING [None]
  - CHOLESTEROSIS [None]
